FAERS Safety Report 6864128-9 (Version None)
Quarter: 2010Q3

REPORT INFORMATION
  Report Type: 
  Country: None (occurrence: None)
  Receive Date: 20100721
  Receipt Date: 20100713
  Transmission Date: 20110219
  Serious: Yes (Hospitalization, Other)
  Sender: FDA-Public Use
  Company Number: US-AMGEN-KDL424208

PATIENT
  Sex: Female

DRUGS (1)
  1. ENBREL [Suspect]
     Indication: RHEUMATOID ARTHRITIS
     Route: 058
     Dates: start: 20061016

REACTIONS (3)
  - BENIGN SPLEEN TUMOUR [None]
  - DIVERTICULITIS [None]
  - LOCALISED INTRAABDOMINAL FLUID COLLECTION [None]
